FAERS Safety Report 9906239 (Version 3)
Quarter: 2014Q2

REPORT INFORMATION
  Report Type: Spontaneous
  Country: US (occurrence: US)
  Receive Date: 20140218
  Receipt Date: 20140501
  Transmission Date: 20141212
  Serious: No
  Sender: FDA-Public Use
  Company Number: US-TEVA-463636USA

PATIENT
  Age: 23 Year
  Sex: Female
  Weight: 108.96 kg

DRUGS (6)
  1. PLAN B ONE-STEP [Suspect]
     Indication: POST COITAL CONTRACEPTION
     Dosage: 1.5 MILLIGRAM DAILY;
     Route: 048
     Dates: start: 20140125, end: 20140125
  2. PLAN B ONE-STEP [Suspect]
     Dosage: 1.5 MILLIGRAM DAILY;
     Route: 048
     Dates: start: 20140202, end: 20140202
  3. LEVOTHYROXINE [Concomitant]
     Indication: THYROID HORMONE REPLACEMENT THERAPY
  4. CALTRATE [Concomitant]
     Indication: CALCIUM DEFICIENCY
  5. CELEXA [Concomitant]
     Indication: DEPRESSION
  6. CELEXA [Concomitant]
     Indication: ANXIETY

REACTIONS (7)
  - Anxiety [Recovered/Resolved]
  - Paranoia [Recovered/Resolved]
  - Menstruation irregular [Recovered/Resolved]
  - Abdominal pain lower [Recovered/Resolved]
  - Nausea [Recovered/Resolved]
  - Headache [Recovered/Resolved]
  - Menstruation delayed [Recovered/Resolved]
